FAERS Safety Report 19507234 (Version 2)
Quarter: 2021Q3

REPORT INFORMATION
  Report Type: Spontaneous
  Country: US (occurrence: US)
  Receive Date: 20210708
  Receipt Date: 20210826
  Transmission Date: 20211014
  Serious: No
  Sender: FDA-Public Use
  Company Number: US-ASTRAZENECA-2021A525326

PATIENT
  Sex: Male
  Weight: 135.6 kg

DRUGS (12)
  1. BYDUREON BCISE [Suspect]
     Active Substance: EXENATIDE
     Indication: TYPE 2 DIABETES MELLITUS
     Route: 065
  2. TETANUS SHOTS [Concomitant]
  3. BABY ASPIRIN [Concomitant]
     Active Substance: ASPIRIN
  4. METOPROLOL. [Concomitant]
     Active Substance: METOPROLOL
  5. VITAMIN C [Concomitant]
     Active Substance: ASCORBIC ACID
  6. VIAMIN D [Concomitant]
  7. SIMVASTATIN. [Concomitant]
     Active Substance: SIMVASTATIN
  8. DUCOLITE [Concomitant]
  9. BYDUREON BCISE [Suspect]
     Active Substance: EXENATIDE
     Indication: GLUCOSE TOLERANCE IMPAIRED
     Route: 065
  10. VITAMIN A [Concomitant]
     Active Substance: VITAMIN A
  11. COVID VACCINES [Concomitant]
  12. ZINC. [Concomitant]
     Active Substance: ZINC

REACTIONS (3)
  - Hypoacusis [Unknown]
  - Wrong technique in device usage process [Unknown]
  - Hepatic enzyme abnormal [Unknown]
